FAERS Safety Report 9165307 (Version 7)
Quarter: 2013Q4

REPORT INFORMATION
  Report Type: Spontaneous
  Country: FR (occurrence: None)
  Receive Date: 20130227
  Receipt Date: 20131129
  Transmission Date: 20140711
  Serious: Yes (Death, Hospitalization)
  Sender: FDA-Public Use
  Company Number: SYM-2013-00910

PATIENT
  Age: 78 Year
  Sex: Male

DRUGS (11)
  1. 5-FU [Suspect]
     Indication: COLORECTAL CANCER METASTATIC
     Dosage: 400 MG, EVERY CYCLE, INTRAVENOUS BOLUS
     Route: 040
     Dates: start: 20130122, end: 20130122
  2. AFLIBERCEPT [Suspect]
     Indication: COLORECTAL CANCER METASTATIC
     Dosage: 320 MG, EVERY CYCLE, INTRAVENOUS (NOT OTHERWISE SPECIFIED)
     Route: 042
     Dates: start: 20130122, end: 20130122
  3. IRINOTECAN (IRINOTECAN) (SOLUTION FOR INFUSION) (IRINOTECAN) [Suspect]
     Indication: COLORECTAL CANCER METASTATIC
     Dosage: 350 MG, EVERY CYCLE, INTRAVENOUS (NOT OTHERWISE SPECIFIED)
     Route: 042
     Dates: start: 20130122, end: 20130122
  4. LEUCOVORIN [Suspect]
     Indication: COLORECTAL CANCER METASTATIC
     Dosage: 400 MG, EVERY CYCLE, INTRAVENOUS (NOT OTHERWISE SPECIFIED)
     Route: 042
     Dates: start: 20130122, end: 20130122
  5. CORTICOSTEROIDS(CORTICOSTEROIDS) [Concomitant]
  6. SEROTONIN ANTAGONISTS [Concomitant]
  7. ANTIHISTAMINES(ANTIHISTAMINES) [Concomitant]
  8. HYPNOTICS AND SEDATIVES(HYPNOTICS AND SEDATIVES) [Concomitant]
  9. LANTUS (INSULIN GLARGINE) (INSULIN GLARGINE) [Concomitant]
  10. APROVEL(IRBESARTAN) (IRBESARTAN) [Concomitant]
  11. ANTISPASMODICS/ ANTICHOLINERGICS (ANTISPASMODICS/ANTICHOLINERGICS)? [Concomitant]

REACTIONS (8)
  - Rectal haemorrhage [None]
  - Malnutrition [None]
  - Asthenia [None]
  - Haemoglobin decreased [None]
  - Decreased appetite [None]
  - Disease progression [None]
  - Colorectal cancer metastatic [None]
  - General physical health deterioration [None]
